FAERS Safety Report 5047103-9 (Version None)
Quarter: 2006Q3

REPORT INFORMATION
  Report Type: 
  Country: None (occurrence: None)
  Receive Date: 20060703
  Receipt Date: 20060624
  Transmission Date: 20061208
  Serious: Yes (Other)
  Sender: FDA-Public Use
  Company Number: 2006038197

PATIENT
  Age: 51 Year
  Sex: Female

DRUGS (11)
  1. ZYRTEC [Suspect]
     Indication: MULTIPLE ALLERGIES
     Dates: end: 20051101
  2. ZYRTEC [Suspect]
     Indication: URTICARIA
     Dates: end: 20051101
  3. PREMARIN [Concomitant]
  4. MONTELUKAST (MONTELUKAST) [Concomitant]
  5. NEXIUM [Concomitant]
  6. METHADONE (METHADONE) [Concomitant]
  7. OXYCODONE HCL [Concomitant]
  8. ATIVAN [Concomitant]
  9. PAXIL CR [Concomitant]
  10. FLONASE [Concomitant]
  11. AFRIN SINUS (OXYMETAZOLINE HYDROCHLORIDE) [Concomitant]

REACTIONS (11)
  - BLOOD CHOLESTEROL INCREASED [None]
  - BLOOD TRIGLYCERIDES INCREASED [None]
  - CHRONIC SINUSITIS [None]
  - CONDITION AGGRAVATED [None]
  - HIGH DENSITY LIPOPROTEIN INCREASED [None]
  - LOW DENSITY LIPOPROTEIN INCREASED [None]
  - MULTIPLE ALLERGIES [None]
  - NASAL DISCOMFORT [None]
  - PRURITUS [None]
  - URTICARIA [None]
  - WEIGHT DECREASED [None]
